FAERS Safety Report 16333573 (Version 1)
Quarter: 2019Q2

REPORT INFORMATION
  Report Type: Spontaneous
  Country: US (occurrence: US)
  Receive Date: 20190520
  Receipt Date: 20190520
  Transmission Date: 20190711
  Serious: No
  Sender: FDA-Public Use
  Company Number: US-UPSHER-SMITH LABORATORIES, LLC-2018USL00313

PATIENT
  Age: 71 Year
  Sex: Female
  Weight: 110.66 kg

DRUGS (15)
  1. GABAPENTIN. [Concomitant]
     Active Substance: GABAPENTIN
  2. MULTIVITAMINS [Concomitant]
     Active Substance: VITAMINS
  3. NOVOLOG [Concomitant]
     Active Substance: INSULIN ASPART
     Dosage: 50 U, 4X/DAY (BEFORE EVERY MEAL AND AT BEDTIME, SLIDING SCALE)
  4. KLOR-CON [Suspect]
     Active Substance: POTASSIUM CHLORIDE
     Indication: FLUID RETENTION
     Dosage: 10 MEQ, 2X/DAY (IN THE MORNING AND EARLY AFTERNOON)
     Route: 048
     Dates: start: 20180620, end: 2018
  5. GEMFIBROZIL. [Concomitant]
     Active Substance: GEMFIBROZIL
  6. CELEBREX [Concomitant]
     Active Substance: CELECOXIB
  7. AZATHIOPRINE. [Concomitant]
     Active Substance: AZATHIOPRINE
  8. CRANBERRY. [Concomitant]
     Active Substance: CRANBERRY
  9. LEVEMIR [Concomitant]
     Active Substance: INSULIN DETEMIR
     Dosage: 100 U, 2X/DAY
  10. EQUATE SINUS AND ALLERGY [Concomitant]
  11. LOSARTAN. [Concomitant]
     Active Substance: LOSARTAN
  12. PREDNISONE. [Concomitant]
     Active Substance: PREDNISONE
  13. TORSEMIDE. [Concomitant]
     Active Substance: TORSEMIDE
     Dosage: UNK
     Dates: start: 201806, end: 2018
  14. PYRIDOSTIGMINE BROMIDE. [Concomitant]
     Active Substance: PYRIDOSTIGMINE BROMIDE
  15. ALPRAZOLAM. [Concomitant]
     Active Substance: ALPRAZOLAM
     Dosage: 0.25 MG, 1X/DAY AT BEDTIME

REACTIONS (6)
  - Blood pressure increased [Recovering/Resolving]
  - Peripheral swelling [Recovered/Resolved]
  - Pain in extremity [Not Recovered/Not Resolved]
  - Weight increased [Recovering/Resolving]
  - Oliguria [Recovering/Resolving]
  - Balance disorder [Recovering/Resolving]

NARRATIVE: CASE EVENT DATE: 2018
